FAERS Safety Report 19094618 (Version 1)
Quarter: 2021Q2

REPORT INFORMATION
  Report Type: Spontaneous
  Country: US (occurrence: US)
  Receive Date: 20210405
  Receipt Date: 20210405
  Transmission Date: 20210717
  Serious: No
  Sender: FDA-Public Use
  Company Number: US-JAZZ-2021-US-003337

PATIENT

DRUGS (2)
  1. SUNOSI [Suspect]
     Active Substance: SOLRIAMFETOL
     Indication: SOMNOLENCE
     Dosage: 75 MILLIGRAM, QD
  2. SUNOSI [Suspect]
     Active Substance: SOLRIAMFETOL
     Indication: FATIGUE

REACTIONS (1)
  - Insomnia [Not Recovered/Not Resolved]
